FAERS Safety Report 9242776 (Version 33)
Quarter: 2017Q3

REPORT INFORMATION
  Report Type: Report from Study
  Country: CA (occurrence: CA)
  Receive Date: 20130419
  Receipt Date: 20170801
  Transmission Date: 20171128
  Serious: Yes (Hospitalization, Other)
  Sender: FDA-Public Use
  Company Number: CA-ROCHE-1191385

PATIENT
  Age: 53 Year
  Sex: Female
  Weight: 71 kg

DRUGS (10)
  1. PREDNISONE. [Concomitant]
     Active Substance: PREDNISONE
     Indication: ARTHRITIS
     Dosage: PREVIOUSLY 5 MG
     Route: 065
  2. FOLIC ACID. [Concomitant]
     Active Substance: FOLIC ACID
  3. TYLENOL WITH CODEINE [Concomitant]
     Active Substance: ACETAMINOPHEN\CODEINE PHOSPHATE
  4. FLUOXETINE [Concomitant]
     Active Substance: FLUOXETINE HYDROCHLORIDE
  5. ACTEMRA [Suspect]
     Active Substance: TOCILIZUMAB
     Indication: RHEUMATOID ARTHRITIS
     Route: 058
     Dates: start: 20160724
  6. QUETIAPINA [Concomitant]
     Active Substance: QUETIAPINE
  7. ACTEMRA [Suspect]
     Active Substance: TOCILIZUMAB
     Route: 042
     Dates: start: 20130318
  8. ACTEMRA [Suspect]
     Active Substance: TOCILIZUMAB
     Route: 042
     Dates: start: 20130419, end: 20160622
  9. ACTEMRA [Suspect]
     Active Substance: TOCILIZUMAB
     Indication: RHEUMATOID ARTHRITIS
     Dosage: MOST RECENT DOSE PRIOR TO SAE 08/MAR/2013
     Route: 042
     Dates: start: 20130114, end: 20160114
  10. SYNTHROID [Concomitant]
     Active Substance: LEVOTHYROXINE SODIUM

REACTIONS (44)
  - Bone swelling [Recovering/Resolving]
  - Heart rate increased [Unknown]
  - Pancreatitis acute [Not Recovered/Not Resolved]
  - Gait disturbance [Not Recovered/Not Resolved]
  - Fatigue [Unknown]
  - Rheumatoid arthritis [Unknown]
  - Skin cancer [Not Recovered/Not Resolved]
  - Arthralgia [Recovering/Resolving]
  - Influenza [Recovered/Resolved]
  - Food poisoning [Unknown]
  - Incision site pain [Unknown]
  - Cholecystitis [Not Recovered/Not Resolved]
  - Migraine [Unknown]
  - Stress [Recovering/Resolving]
  - Agitation [Recovering/Resolving]
  - Malaise [Recovered/Resolved]
  - Infusion related reaction [Unknown]
  - Hypotension [Unknown]
  - Malaise [Unknown]
  - Peripheral swelling [Not Recovered/Not Resolved]
  - Connective tissue disorder [Unknown]
  - Abdominal pain upper [Not Recovered/Not Resolved]
  - Weight increased [Not Recovered/Not Resolved]
  - Arthralgia [Recovering/Resolving]
  - Joint swelling [Recovering/Resolving]
  - Hypotension [Unknown]
  - Blood pressure increased [Unknown]
  - Arthritis [Recovering/Resolving]
  - Blood pressure diastolic decreased [Unknown]
  - Gallbladder disorder [Unknown]
  - Tooth abscess [Unknown]
  - Pain in extremity [Recovering/Resolving]
  - Cough [Unknown]
  - Peripheral swelling [Unknown]
  - Heart rate increased [Unknown]
  - Abdominal pain [Unknown]
  - Blood pressure fluctuation [Unknown]
  - Pain [Not Recovered/Not Resolved]
  - Muscle strain [Not Recovered/Not Resolved]
  - Joint swelling [Not Recovered/Not Resolved]
  - Viral infection [Unknown]
  - Fall [Not Recovered/Not Resolved]
  - Thermal burn [Not Recovered/Not Resolved]
  - Drug ineffective [Unknown]

NARRATIVE: CASE EVENT DATE: 20130208
